FAERS Safety Report 5294640-8 (Version None)
Quarter: 2007Q2

REPORT INFORMATION
  Report Type: 
  Country: None (occurrence: None)
  Receive Date: 20070412
  Receipt Date: 20070405
  Transmission Date: 20071010
  Serious: Yes (Other)
  Sender: FDA-Public Use
  Company Number: DE-GLAXOSMITHKLINE-D0052541A

PATIENT
  Age: 72 Year
  Sex: Female

DRUGS (4)
  1. AVANDAMET [Suspect]
     Dosage: 502MG TWICE PER DAY
     Route: 048
     Dates: start: 20040101
  2. GLYBURIDE [Concomitant]
     Dosage: 3.5MG TWICE PER DAY
     Route: 048
  3. METOHEXAL [Concomitant]
     Indication: HYPERTENSION
     Dosage: .5TAB TWICE PER DAY
     Route: 048
  4. ALLOPURINOL [Concomitant]
     Route: 048

REACTIONS (3)
  - FALL [None]
  - FOOT FRACTURE [None]
  - HUMERUS FRACTURE [None]
